FAERS Safety Report 12483330 (Version 2)
Quarter: 2016Q2

REPORT INFORMATION
  Report Type: Report from Study
  Country: FR (occurrence: FR)
  Receive Date: 20160621
  Receipt Date: 20160622
  Transmission Date: 20160815
  Serious: Yes (Other)
  Sender: FDA-Public Use
  Company Number: FR-ROCHE-1779121

PATIENT

DRUGS (10)
  1. RITUXIMAB [Suspect]
     Active Substance: RITUXIMAB
     Indication: PROPHYLAXIS AGAINST TRANSPLANT REJECTION
     Dosage: 375 MG/M2 ON DAYS 15 AND 30 PRE TRANSPLANT
     Route: 042
  2. MYCOPHENOLIC ACID. [Suspect]
     Active Substance: MYCOPHENOLIC ACID
     Dosage: 1440 MG/D UNTIL POSTOPERATIVE DAY 15 AND THEREAFTER AT 720 MG/DAY
     Route: 065
  3. ANTITHYMOCYTE IMMUNOGLOBULIN [Suspect]
     Active Substance: THYMOCYTE IMMUNE GLOBULIN NOS
     Indication: PROPHYLAXIS AGAINST TRANSPLANT REJECTION
     Dosage: 1MG/KG, INFUSED ON DAYS 0, 1, 3, AND 5 POST-TRANSPLANT
     Route: 065
  4. IMMUNOGLOBULIN [Suspect]
     Active Substance: HUMAN IMMUNOGLOBULIN G
     Indication: PROPHYLAXIS AGAINST TRANSPLANT REJECTION
     Dosage: PRE-TRANSPLANT 1 G/KG AT 40 DAYS PRE TRANSPLANT
     Route: 065
  5. PREDNISONE. [Suspect]
     Active Substance: PREDNISONE
     Indication: PROPHYLAXIS AGAINST TRANSPLANT REJECTION
     Dosage: 0.5 MG/KG DAILY UNTIL DAY 15, WHICH WAS THEN PROGRESSIVELY TAPERED TO ACHIEVE 5 MG/DAY BY MONTH 3
     Route: 065
  6. METHYLPREDNISOLONE. [Suspect]
     Active Substance: METHYLPREDNISOLONE
     Indication: PROPHYLAXIS AGAINST TRANSPLANT REJECTION
     Dosage: 10MG/KG ON DAY 0; 2 MG/KG ON DAY 1; 1 MG/KG ON DAY 2
     Route: 065
  7. TACROLIMUS. [Suspect]
     Active Substance: TACROLIMUS
     Indication: PROPHYLAXIS AGAINST TRANSPLANT REJECTION
     Dosage: 0.1 MG/KG B.I.D. (TWICE DAILY) AIMING AT TROUGH LEVELS BETWEEN 8 AND 10 NG/ML
     Route: 065
  8. MYCOPHENOLATE MOFETIL. [Suspect]
     Active Substance: MYCOPHENOLATE MOFETIL
     Indication: PROPHYLAXIS AGAINST TRANSPLANT REJECTION
     Dosage: PRE-TRANSPLANT
     Route: 065
  9. MYCOPHENOLIC ACID. [Suspect]
     Active Substance: MYCOPHENOLIC ACID
     Indication: PROPHYLAXIS AGAINST TRANSPLANT REJECTION
     Dosage: PRE-TRANSPLANT
     Route: 065
  10. SULFAMETHOXAZOLE/TRIMETHOPRIM [Concomitant]
     Active Substance: SULFAMETHOXAZOLE\TRIMETHOPRIM
     Indication: PROPHYLAXIS AGAINST TRANSPLANT REJECTION
     Dosage: 400 MG/80 MG EVERY OTHER DAY
     Route: 065

REACTIONS (3)
  - Sepsis [Recovered/Resolved]
  - Acute kidney injury [Recovered/Resolved]
  - Pyelonephritis acute [Recovered/Resolved]
